FAERS Safety Report 4809870-6 (Version None)
Quarter: 2005Q4

REPORT INFORMATION
  Report Type: 
  Country: None (occurrence: None)
  Receive Date: 20051024
  Receipt Date: 20051013
  Transmission Date: 20060501
  Serious: Yes (Other)
  Sender: FDA-Public Use
  Company Number: 2005141961

PATIENT
  Age: 23 Year
  Sex: Male

DRUGS (3)
  1. TESTOSTERONE CIPIONATE SOLUTION, STERILE (TESTOSTERONE CIPIONATE) [Suspect]
     Indication: BODY MASS INDEX INCREASED
  2. ANADROL [Suspect]
     Indication: BODY MASS INDEX INCREASED
     Dosage: 250 MG (250 MG, 1 IN 1 D), ORAL
     Route: 048
  3. METHANDROSTENOLONE (METANDIENONE) [Suspect]
     Indication: BODY MASS INDEX INCREASED
     Dosage: 30 MG (30 MG, 1 IN 1 D)

REACTIONS (17)
  - ABNORMAL BEHAVIOUR [None]
  - AGGRESSION [None]
  - ALCOHOL USE [None]
  - ANGER [None]
  - DELUSION [None]
  - DRUG ABUSER [None]
  - GRANDIOSITY [None]
  - HOMICIDE [None]
  - IMPRISONMENT [None]
  - INSOMNIA [None]
  - IRRITABILITY [None]
  - MANIA [None]
  - MOOD ALTERED [None]
  - MOOD DISORDER DUE TO A GENERAL MEDICAL CONDITION [None]
  - PHYSICAL ASSAULT [None]
  - ROAD TRAFFIC ACCIDENT [None]
  - SELF INJURIOUS BEHAVIOUR [None]
